FAERS Safety Report 20623224 (Version 1)
Quarter: 2022Q1

REPORT INFORMATION
  Report Type: Spontaneous
  Country: US (occurrence: None)
  Receive Date: 20220322
  Receipt Date: 20220322
  Transmission Date: 20220423
  Serious: Yes (Hospitalization)
  Sender: FDA-Public Use
  Company Number: None

PATIENT
  Sex: Female

DRUGS (4)
  1. BOTOX [Suspect]
     Active Substance: ONABOTULINUMTOXINA
     Indication: Migraine
     Dosage: INJECT UP TO 200 UNITS INTRA-MUSCULARLY TO HEAD AND NECK MUSCLES EVERY 3 MONTHS??STOP   PT WCB
     Route: 030
     Dates: start: 20210615
  2. BOTOX [Suspect]
     Active Substance: ONABOTULINUMTOXINA
  3. ENBREL SRCLK INJ [Concomitant]
  4. RECLAST INJ [Concomitant]

REACTIONS (2)
  - Loss of therapeutic response [None]
  - Hospitalisation [None]
